FAERS Safety Report 6891776-2 (Version None)
Quarter: 2010Q3

REPORT INFORMATION
  Report Type: 
  Country: None (occurrence: None)
  Receive Date: 20100731
  Receipt Date: 20071030
  Transmission Date: 20110219
  Serious: No
  Sender: FDA-Public Use
  Company Number: US-PFIZER INC-2007087361

PATIENT
  Sex: Female

DRUGS (13)
  1. GABAPENTIN [Suspect]
     Indication: NEUROPATHY PERIPHERAL
  2. ACTOS [Concomitant]
  3. ALBUTEROL [Concomitant]
  4. FUROSEMIDE [Concomitant]
  5. POTASSIUM [Concomitant]
  6. GLIPIZIDE [Concomitant]
  7. HYDROCODONE BITARTRATE [Concomitant]
  8. LANTUS [Concomitant]
  9. LIPITOR [Concomitant]
  10. METOPROLOL TARTRATE [Concomitant]
  11. PRILOSEC [Concomitant]
  12. TROSPIUM CHLORIDE [Concomitant]
  13. ALL OTHER THERAPEUTIC PRODUCTS [Concomitant]

REACTIONS (1)
  - PAIN [None]
